FAERS Safety Report 6572622-3 (Version None)
Quarter: 2010Q1

REPORT INFORMATION
  Report Type: 
  Country: None (occurrence: None)
  Receive Date: 20100205
  Receipt Date: 20100127
  Transmission Date: 20100710
  Serious: Yes (Other)
  Sender: FDA-Public Use
  Company Number: GR-ELI_LILLY_AND_COMPANY-GR201001000388

PATIENT
  Sex: Female

DRUGS (7)
  1. FORTEO [Suspect]
     Indication: OSTEOPOROSIS
     Dosage: 20 UG, DAILY (1/D)
     Route: 058
     Dates: start: 20091201, end: 20100106
  2. LEPUR [Concomitant]
     Indication: HYPERCHOLESTEROLAEMIA
     Dosage: 20 MG, DAILY (1/D)
     Route: 048
  3. LOPRESSOR [Concomitant]
     Indication: HYPERTENSION
     Dosage: 100 MG, DAILY (1/D)
     Route: 048
  4. SINTROM [Concomitant]
     Dosage: 4 MG, DAILY (1/D)
     Route: 048
  5. DIOVAN HCT [Concomitant]
     Indication: HYPERTENSION
     Dosage: 1 (80MG +12.5MG), DAILY (1/D)
     Route: 048
  6. ZYLORIC [Concomitant]
     Indication: HYPERURICAEMIA
     Dosage: 100 MG, DAILY (1/D)
     Route: 048
  7. NEXIUM [Concomitant]
     Dosage: 40 MG, DAILY (1/D)
     Route: 048

REACTIONS (1)
  - RENAL FAILURE [None]
